FAERS Safety Report 25102700 (Version 1)
Quarter: 2025Q1

REPORT INFORMATION
  Report Type: Spontaneous
  Country: US (occurrence: US)
  Receive Date: 20250321
  Receipt Date: 20250321
  Transmission Date: 20250408
  Serious: Yes (Other)
  Sender: BRISTOL-MYERS SQUIBB COMPANY
  Company Number: US-BRISTOL-MYERS SQUIBB COMPANY-2025-036169

PATIENT
  Age: 73 Year
  Sex: Female
  Weight: 77.11 kg

DRUGS (3)
  1. KENALOG [Suspect]
     Active Substance: TRIAMCINOLONE ACETONIDE
     Indication: Arthralgia
  2. LIDOCAINE [Suspect]
     Active Substance: LIDOCAINE
     Indication: Arthralgia
  3. BUPIVACAINE [Suspect]
     Active Substance: BUPIVACAINE
     Indication: Arthralgia

REACTIONS (6)
  - Headache [Recovered/Resolved]
  - Hypertension [Unknown]
  - Flushing [Recovered/Resolved]
  - Chills [Unknown]
  - Nausea [Unknown]
  - White blood cell count increased [Unknown]

NARRATIVE: CASE EVENT DATE: 20250220
